FAERS Safety Report 8873943 (Version 1)
Quarter: 2012Q4

REPORT INFORMATION
  Report Type: 
  Country: CA (occurrence: CA)
  Receive Date: 20121023
  Receipt Date: 20121023
  Transmission Date: 20130627
  Serious: Yes (Hospitalization)
  Sender: FDA-Public Use
  Company Number: CA-009507513-1210CAN010481

PATIENT
  Sex: Female

DRUGS (1)
  1. BOCEPREVIR [Suspect]
     Indication: HEPATITIS C
     Dosage: 200 mg, UNK
     Route: 048

REACTIONS (3)
  - Blood count abnormal [Unknown]
  - Transfusion [Unknown]
  - Lymphadenopathy [Unknown]
